FAERS Safety Report 9514854 (Version 3)
Quarter: 2013Q4

REPORT INFORMATION
  Report Type: Spontaneous
  Country: US (occurrence: None)
  Receive Date: 20130909
  Receipt Date: 20131213
  Transmission Date: 20140711
  Serious: Yes (Death, Hospitalization)
  Sender: FDA-Public Use
  Company Number: US-000773

PATIENT
  Age: 59 Year
  Sex: Male

DRUGS (10)
  1. GATTEX [Suspect]
     Indication: SHORT-BOWEL SYNDROME
     Dosage: (SUBCUTANEOUS)
     Route: 058
     Dates: start: 201303
  2. EFFIENT [Concomitant]
  3. LISINOPRIL [Concomitant]
  4. PREVACID [Concomitant]
  5. B12-VITAMIN [Concomitant]
  6. FOLIC ACID [Concomitant]
  7. DIGOXIN [Concomitant]
  8. ATORVASTATIN [Concomitant]
  9. ASPIRIN [Concomitant]
  10. VENOFER [Concomitant]

REACTIONS (13)
  - Death [None]
  - Tricuspid valve incompetence [None]
  - Endocarditis [None]
  - Fall [None]
  - Spinal cord injury cervical [None]
  - Haemofiltration [None]
  - Septic embolus [None]
  - Staphylococcus test positive [None]
  - Mitral valve incompetence [None]
  - Aortic valve incompetence [None]
  - Arteriovenous fistula thrombosis [None]
  - Oedema peripheral [None]
  - Cerebellar infarction [None]
